FAERS Safety Report 25774121 (Version 1)
Quarter: 2025Q3

REPORT INFORMATION
  Report Type: Spontaneous
  Country: US (occurrence: None)
  Receive Date: 20250906
  Receipt Date: 20250906
  Transmission Date: 20251021
  Serious: Yes (Hospitalization)
  Sender: FDA-CTU
  Company Number: None

PATIENT
  Age: 39 Year
  Sex: Female

DRUGS (3)
  1. METHYLPREDNISOLONE [Suspect]
     Active Substance: METHYLPREDNISOLONE
     Dates: start: 20250823
  2. Amphetamine salts ER 30 [Concomitant]
  3. Meclizine 25 mg tablet [Concomitant]

REACTIONS (6)
  - Swelling face [None]
  - Blood pressure diastolic increased [None]
  - Dizziness [None]
  - Hemiparesis [None]
  - Mental status changes [None]
  - Thinking abnormal [None]

NARRATIVE: CASE EVENT DATE: 20250904
